FAERS Safety Report 22395087 (Version 1)
Quarter: 2023Q2

REPORT INFORMATION
  Report Type: Spontaneous
  Country: ES (occurrence: ES)
  Receive Date: 20230601
  Receipt Date: 20230601
  Transmission Date: 20230722
  Serious: Yes (Hospitalization)
  Sender: FDA-Public Use
  Company Number: None

PATIENT
  Age: 52 Year
  Sex: Male

DRUGS (1)
  1. HULIO [Suspect]
     Active Substance: ADALIMUMAB-FKJP
     Indication: Autoimmune uveitis
     Dosage: 40 MILLIGRAM, BIMONTHLY (40MG EVERY 14 DAYS)
     Route: 058
     Dates: start: 20160803, end: 20230315

REACTIONS (3)
  - Blindness [Recovering/Resolving]
  - Autoimmune demyelinating disease [Recovering/Resolving]
  - Optic neuritis [Recovered/Resolved]

NARRATIVE: CASE EVENT DATE: 20230306
